FAERS Safety Report 5171221-8 (Version None)
Quarter: 2006Q4

REPORT INFORMATION
  Report Type: 
  Country: None (occurrence: None)
  Receive Date: 20061213
  Receipt Date: 20061208
  Transmission Date: 20070319
  Serious: Yes (Death)
  Sender: FDA-Public Use
  Company Number: JP-BRISTOL-MYERS SQUIBB COMPANY-13606363

PATIENT
  Age: 80 Year
  Sex: Male

DRUGS (2)
  1. QUESTRAN [Suspect]
     Dates: start: 20041229, end: 20050104
  2. ARAVA [Suspect]
     Indication: RHEUMATOID ARTHRITIS
     Route: 048
     Dates: start: 20040726, end: 20041227

REACTIONS (3)
  - CARDIO-RESPIRATORY ARREST [None]
  - OBSTRUCTIVE AIRWAYS DISORDER [None]
  - PNEUMONIA [None]
